FAERS Safety Report 14432555 (Version 1)
Quarter: 2018Q1

REPORT INFORMATION
  Report Type: Spontaneous
  Country: GB (occurrence: GB)
  Receive Date: 20180124
  Receipt Date: 20180124
  Transmission Date: 20180509
  Serious: Yes (Other)
  Sender: FDA-Public Use
  Company Number: GB-PFIZER INC-2018029966

PATIENT
  Age: 33 Year
  Sex: Female
  Weight: 77 kg

DRUGS (3)
  1. AMITRIPTYLINE HYDROCHLORIDE. [Concomitant]
     Active Substance: AMITRIPTYLINE HYDROCHLORIDE
     Dosage: UNK
  2. LEVOTHYROXINE SODIUM. [Concomitant]
     Active Substance: LEVOTHYROXINE SODIUM
     Dosage: UNK
  3. CABERGOLINE. [Suspect]
     Active Substance: CABERGOLINE
     Indication: GALACTORRHOEA
     Dosage: 500 UG, UNK
     Route: 048
     Dates: end: 201606

REACTIONS (2)
  - Deafness [Recovered/Resolved]
  - Confusional state [Recovered/Resolved]
